FAERS Safety Report 24965463 (Version 3)
Quarter: 2025Q2

REPORT INFORMATION
  Report Type: Spontaneous
  Country: US (occurrence: US)
  Receive Date: 20250213
  Receipt Date: 20250402
  Transmission Date: 20250717
  Serious: No
  Sender: AMGEN
  Company Number: US-AMGEN-USASP2025027344

PATIENT
  Sex: Male

DRUGS (1)
  1. OTEZLA [Suspect]
     Active Substance: APREMILAST
     Indication: Psoriasis
     Dosage: 30 MILLIGRAM, BID
     Route: 048

REACTIONS (5)
  - Pruritus [Not Recovered/Not Resolved]
  - Product dose omission issue [Unknown]
  - Therapy interrupted [Unknown]
  - Psoriasis [Not Recovered/Not Resolved]
  - Skin haemorrhage [Not Recovered/Not Resolved]
